FAERS Safety Report 23284170 (Version 4)
Quarter: 2024Q4

REPORT INFORMATION
  Report Type: Report from Study
  Country: US (occurrence: US)
  Receive Date: 20231211
  Receipt Date: 20241111
  Transmission Date: 20250114
  Serious: Yes (Life-Threatening, Hospitalization)
  Sender: ACADIA PHARMACEUTICALS
  Company Number: US-ACADIA PHARMACEUTICALS INC.-ACA-2023-TRF-005273

PATIENT
  Age: 10 Year
  Sex: Female
  Weight: 24 kg

DRUGS (6)
  1. DAYBUE [Suspect]
     Active Substance: TROFINETIDE
     Indication: Rett syndrome
     Dosage: 30 MILLILITER, BID
     Route: 048
     Dates: start: 20231024
  2. DAYBUE [Suspect]
     Active Substance: TROFINETIDE
     Dosage: 30 MILLILITER, BID
     Route: 048
     Dates: end: 20231209
  3. VALPROIC ACID [Concomitant]
     Active Substance: VALPROIC ACID
     Indication: Seizure
     Dosage: 4 MILLILITER, TID
     Route: 048
     Dates: start: 20190112
  4. KEPPRA [Concomitant]
     Active Substance: LEVETIRACETAM
     Indication: Seizure
     Dosage: 10 MILLILITER, BID
     Route: 048
     Dates: start: 20160101
  5. VIMPAT [Concomitant]
     Active Substance: LACOSAMIDE
     Indication: Seizure
     Dosage: 10 MILLILITER, BID
     Route: 048
     Dates: start: 20230105
  6. LEVOCARNITINE [Concomitant]
     Active Substance: LEVOCARNITINE
     Indication: Seizure
     Dosage: 5 MILLILITER, BID
     Route: 048
     Dates: start: 20190112

REACTIONS (4)
  - Dehydration [Recovered/Resolved]
  - Diarrhoea [Recovered/Resolved]
  - Underdose [Not Recovered/Not Resolved]
  - Diarrhoea [Not Recovered/Not Resolved]

NARRATIVE: CASE EVENT DATE: 20231025
